FAERS Safety Report 9539052 (Version 5)
Quarter: 2014Q1

REPORT INFORMATION
  Report Type: Report from Study
  Country: US (occurrence: US)
  Receive Date: 20130920
  Receipt Date: 20140107
  Transmission Date: 20141002
  Serious: No
  Sender: FDA-Public Use
  Company Number: PHEH2013US016660

PATIENT
  Age: 80 Year
  Sex: Male
  Weight: 99.77 kg

DRUGS (9)
  1. TASIGNA [Suspect]
     Indication: CHRONIC MYELOID LEUKAEMIA
     Dosage: 300 MG, BID
     Route: 048
     Dates: start: 20130524
  2. TASIGNA [Suspect]
     Dosage: 400 MG, BID
     Route: 048
     Dates: start: 201305
  3. CELEXA [Concomitant]
     Dosage: 10 MG, QD
  4. ASPIRIN [Concomitant]
     Dosage: 325 MG, QD
  5. LIPITOR [Concomitant]
     Dosage: 10 MG, QD
  6. SOMA [Concomitant]
     Dosage: 250 MG, QD
  7. VICODIN [Concomitant]
  8. HYDROCHLOROTHIAZIDE [Concomitant]
     Indication: HYPERTENSION
     Dosage: 25 MG, DAILY
  9. AMILORID/HCTZ [Concomitant]

REACTIONS (4)
  - Headache [Recovering/Resolving]
  - Gait disturbance [Recovering/Resolving]
  - Fatigue [Recovering/Resolving]
  - Fall [Not Recovered/Not Resolved]
